FAERS Safety Report 6177150-5 (Version None)
Quarter: 2009Q2

REPORT INFORMATION
  Report Type: 
  Country: None (occurrence: None)
  Receive Date: 20090504
  Receipt Date: 20090422
  Transmission Date: 20091009
  Serious: Yes (Death, Life-Threatening)
  Sender: FDA-Public Use
  Company Number: JP-PFIZER INC-2009164507

PATIENT

DRUGS (5)
  1. SUNITINIB MALATE [Suspect]
     Indication: RENAL CELL CARCINOMA
     Dosage: 50 MG, DAILY
     Route: 048
     Dates: start: 20081215, end: 20090111
  2. DECADRON [Concomitant]
  3. FAMOTIDINE [Concomitant]
  4. CYTOTEC [Concomitant]
  5. LOXONIN [Concomitant]

REACTIONS (2)
  - DEATH [None]
  - HYPERCALCAEMIA [None]
